FAERS Safety Report 21473546 (Version 1)
Quarter: 2022Q4

REPORT INFORMATION
  Report Type: Spontaneous
  Country: CN (occurrence: CN)
  Receive Date: 20221018
  Receipt Date: 20221018
  Transmission Date: 20230113
  Serious: Yes (Hospitalization)
  Sender: FDA-Public Use
  Company Number: CN-PFIZER INC-PV202200083303

PATIENT
  Age: 7 Month
  Sex: Male
  Weight: 8.5 kg

DRUGS (3)
  1. AZITHROMYCIN [Suspect]
     Active Substance: AZITHROMYCIN
     Indication: Hand-foot-and-mouth disease
     Dosage: 0.084 G, 1X/DAY
     Route: 048
     Dates: start: 20220914, end: 20220918
  2. CEFOTAXIME SODIUM [Suspect]
     Active Substance: CEFOTAXIME SODIUM
     Indication: Hand-foot-and-mouth disease
     Dosage: 0.42 G, 2X/DAY (NON-PFIZER PRODUCT; DROP RATE: 15 DROPS/MIN)
     Route: 041
     Dates: start: 20220914, end: 20220918
  3. SODIUM CHLORIDE [Concomitant]
     Active Substance: SODIUM CHLORIDE
     Indication: Vehicle solution use
     Dosage: 50 ML, 2X/DAY (NON-PFIZER PRODUCT; DROP RATE: 15 DROPS/MIN)
     Route: 041
     Dates: start: 20220914, end: 20220918

REACTIONS (3)
  - White blood cell count decreased [Recovering/Resolving]
  - Neutrophil count decreased [Recovering/Resolving]
  - Off label use [Unknown]

NARRATIVE: CASE EVENT DATE: 20220914
